FAERS Safety Report 9551422 (Version 3)
Quarter: 2013Q4

REPORT INFORMATION
  Report Type: Report from Study
  Country: DE (occurrence: DE)
  Receive Date: 20130925
  Receipt Date: 20131004
  Transmission Date: 20140711
  Serious: Yes (Other)
  Sender: FDA-Public Use
  Company Number: DE-ROCHE-1277882

PATIENT
  Sex: 0

DRUGS (2)
  1. RANIBIZUMAB [Suspect]
     Indication: DIABETIC RETINAL OEDEMA
     Route: 050
  2. RANIBIZUMAB [Suspect]
     Route: 050
     Dates: start: 20130712

REACTIONS (6)
  - Detachment of retinal pigment epithelium [Unknown]
  - Exudative retinopathy [Unknown]
  - Visual acuity reduced [Unknown]
  - Eye disorder [Unknown]
  - Retinal haemorrhage [Unknown]
  - Retinal disorder [Unknown]
